FAERS Safety Report 7127161 (Version 3)
Quarter: 2013Q4

REPORT INFORMATION
  Report Type: Spontaneous
  Country: US (occurrence: US)
  Receive Date: 20090924
  Receipt Date: 20131204
  Transmission Date: 20140711
  Serious: Yes (Hospitalization)
  Sender: FDA-Public Use
  Company Number: US-ASTRAZENECA-2008UW23075

PATIENT
  Age: 54 Year
  Sex: Male
  Weight: 110.7 kg

DRUGS (16)
  1. SEROQUEL [Suspect]
     Indication: BIPOLAR II DISORDER
     Route: 048
     Dates: start: 2002
  2. SEROQUEL [Suspect]
     Indication: PERSONALITY DISORDER
     Route: 048
     Dates: start: 2002
  3. SEROQUEL [Suspect]
     Indication: SCHIZOPHRENIA
     Route: 048
     Dates: start: 2002
  4. SEROQUEL [Suspect]
     Indication: BIPOLAR II DISORDER
     Dosage: 400 MG IN THE MORNING AND IN THE AFTERNOON AND 600 MG AT BEDTIME
     Route: 048
  5. SEROQUEL [Suspect]
     Indication: PERSONALITY DISORDER
     Dosage: 400 MG IN THE MORNING AND IN THE AFTERNOON AND 600 MG AT BEDTIME
     Route: 048
  6. SEROQUEL [Suspect]
     Indication: SCHIZOPHRENIA
     Dosage: 400 MG IN THE MORNING AND IN THE AFTERNOON AND 600 MG AT BEDTIME
     Route: 048
  7. SEROQUEL [Suspect]
     Indication: BIPOLAR II DISORDER
     Route: 048
  8. SEROQUEL [Suspect]
     Indication: PERSONALITY DISORDER
     Route: 048
  9. SEROQUEL [Suspect]
     Indication: SCHIZOPHRENIA
     Route: 048
  10. SEROQUEL [Suspect]
     Indication: BIPOLAR II DISORDER
     Route: 048
  11. SEROQUEL [Suspect]
     Indication: PERSONALITY DISORDER
     Route: 048
  12. SEROQUEL [Suspect]
     Indication: SCHIZOPHRENIA
     Route: 048
  13. VALIUM [Concomitant]
     Indication: HYPERTENSION
  14. VALIUM [Concomitant]
     Indication: HYPERTENSION
  15. AMBIEN [Concomitant]
  16. ZANTAC [Concomitant]
     Indication: ABDOMINAL DISCOMFORT

REACTIONS (14)
  - Aggression [Unknown]
  - Amnesia [Unknown]
  - Neck mass [Not Recovered/Not Resolved]
  - Pharyngeal mass [Not Recovered/Not Resolved]
  - Abscess [Recovered/Resolved]
  - Delirium tremens [Unknown]
  - Hallucination [Unknown]
  - Impaired driving ability [Not Recovered/Not Resolved]
  - Amnesia [Not Recovered/Not Resolved]
  - Amnesia [Not Recovered/Not Resolved]
  - Weight increased [Not Recovered/Not Resolved]
  - Dizziness [Not Recovered/Not Resolved]
  - Intentional drug misuse [Not Recovered/Not Resolved]
  - Off label use [Not Recovered/Not Resolved]
